FAERS Safety Report 18503120 (Version 1)
Quarter: 2020Q4

REPORT INFORMATION
  Report Type: Report from Study
  Country: US (occurrence: US)
  Receive Date: 20201113
  Receipt Date: 20201113
  Transmission Date: 20210114
  Serious: Yes (Death, Hospitalization)
  Sender: FDA-Public Use
  Company Number: US-JNJFOC-20201115388

PATIENT
  Age: 90 Year
  Sex: Male

DRUGS (2)
  1. HALDOL [Suspect]
     Active Substance: HALOPERIDOL
     Indication: DELIRIUM
     Dosage: TWO DOSES OF 5 MG
     Route: 042
  2. QUETIAPINE. [Suspect]
     Active Substance: QUETIAPINE
     Indication: DELIRIUM
     Route: 065

REACTIONS (4)
  - Off label use [Unknown]
  - Product use issue [Unknown]
  - Dyskinesia [Fatal]
  - Respiratory failure [Fatal]
